FAERS Safety Report 25142233 (Version 1)
Quarter: 2025Q1

REPORT INFORMATION
  Report Type: Spontaneous
  Country: FR (occurrence: FR)
  Receive Date: 20250331
  Receipt Date: 20250331
  Transmission Date: 20250409
  Serious: Yes (Hospitalization)
  Sender: MYLAN
  Company Number: None

PATIENT
  Age: 40 Year
  Sex: Female
  Weight: 58 kg

DRUGS (8)
  1. NOREPINEPHRINE [Suspect]
     Active Substance: NOREPINEPHRINE
     Indication: Caesarean section
     Dosage: 240 MICROGRAM, QH,(16 GAMMA 240?G /H)
     Dates: start: 20200411, end: 20200411
  2. NOREPINEPHRINE [Suspect]
     Active Substance: NOREPINEPHRINE
     Dosage: 240 MICROGRAM, QH,(16 GAMMA 240?G /H)
     Route: 042
     Dates: start: 20200411, end: 20200411
  3. NOREPINEPHRINE [Suspect]
     Active Substance: NOREPINEPHRINE
     Dosage: 240 MICROGRAM, QH,(16 GAMMA 240?G /H)
     Route: 042
     Dates: start: 20200411, end: 20200411
  4. NOREPINEPHRINE [Suspect]
     Active Substance: NOREPINEPHRINE
     Dosage: 240 MICROGRAM, QH,(16 GAMMA 240?G /H)
     Dates: start: 20200411, end: 20200411
  5. EPHEDRINE [Suspect]
     Active Substance: EPHEDRINE
     Indication: Caesarean section
     Dates: start: 20200411, end: 20200411
  6. EPHEDRINE [Suspect]
     Active Substance: EPHEDRINE
     Route: 042
     Dates: start: 20200411, end: 20200411
  7. EPHEDRINE [Suspect]
     Active Substance: EPHEDRINE
     Route: 042
     Dates: start: 20200411, end: 20200411
  8. EPHEDRINE [Suspect]
     Active Substance: EPHEDRINE
     Dates: start: 20200411, end: 20200411

REACTIONS (2)
  - Reversible cerebral vasoconstriction syndrome [Recovered/Resolved]
  - Maternal exposure during delivery [Unknown]

NARRATIVE: CASE EVENT DATE: 20200411
